FAERS Safety Report 22819751 (Version 4)
Quarter: 2023Q4

REPORT INFORMATION
  Report Type: Spontaneous
  Country: US (occurrence: US)
  Receive Date: 20230814
  Receipt Date: 20231109
  Transmission Date: 20240109
  Serious: No
  Sender: FDA-Public Use
  Company Number: US-SA-SAC20230811000282

PATIENT
  Age: 18 Year
  Sex: Male

DRUGS (2)
  1. DUPIXENT [Suspect]
     Active Substance: DUPILUMAB
     Indication: Eosinophilic oesophagitis
     Dosage: 300 MG, QW
     Route: 058
     Dates: start: 202307, end: 2023
  2. DUPIXENT [Suspect]
     Active Substance: DUPILUMAB
     Dosage: UNK
     Route: 058
     Dates: start: 2023

REACTIONS (8)
  - Nausea [Unknown]
  - Muscle spasms [Unknown]
  - Dysphagia [Unknown]
  - Oesophageal disorder [Unknown]
  - Abdominal pain upper [Unknown]
  - Injection site mass [Recovered/Resolved]
  - Injection site pain [Unknown]
  - Product dose omission issue [Unknown]

NARRATIVE: CASE EVENT DATE: 20230101
